FAERS Safety Report 6678047-4 (Version None)
Quarter: 2010Q2

REPORT INFORMATION
  Report Type: 
  Country: None (occurrence: None)
  Receive Date: 20100412
  Receipt Date: 20100331
  Transmission Date: 20101027
  Serious: Yes (Other)
  Sender: FDA-Public Use
  Company Number: PHHY2010JP20510

PATIENT
  Age: 78 Year
  Sex: Male

DRUGS (2)
  1. NEORAL [Suspect]
     Indication: PEMPHIGOID
     Dosage: 100 MG
     Route: 048
  2. PREDNISOLONE [Concomitant]
     Route: 048

REACTIONS (1)
  - GASTROINTESTINAL PERFORATION [None]
